FAERS Safety Report 24879854 (Version 2)
Quarter: 2025Q1

REPORT INFORMATION
  Report Type: Spontaneous
  Country: GR (occurrence: GR)
  Receive Date: 20250123
  Receipt Date: 20250214
  Transmission Date: 20250408
  Serious: Yes (Hospitalization, Other)
  Sender: ELI LILLY AND COMPANY
  Company Number: GR-ELI_LILLY_AND_COMPANY-GR202501012830

PATIENT
  Sex: Female
  Weight: 67 kg

DRUGS (1)
  1. JAYPIRCA [Suspect]
     Active Substance: PIRTOBRUTINIB
     Indication: Mantle cell lymphoma
     Dosage: 200 MG, DAILY
     Route: 048
     Dates: start: 202408

REACTIONS (4)
  - Pericarditis [Recovered/Resolved]
  - Cardiac failure [Unknown]
  - Pneumonia [Recovering/Resolving]
  - Pleural effusion [Unknown]
